FAERS Safety Report 5731149-9 (Version None)
Quarter: 2008Q2

REPORT INFORMATION
  Report Type: 
  Country: None (occurrence: None)
  Receive Date: 20080505
  Receipt Date: 20080430
  Transmission Date: 20081010
  Serious: Yes (Death, Hospitalization)
  Sender: FDA-Public Use
  Company Number: 2008SP007228

PATIENT
  Age: 68 Year
  Sex: Male
  Weight: 67 kg

DRUGS (13)
  1. TEMOZOLOMIDE [Suspect]
     Indication: GLIOBLASTOMA
     Dosage: 75 MG/M2; ; PO, 200 MG/M2; QD; PO
     Route: 048
     Dates: start: 20080327, end: 20080331
  2. TEMOZOLOMIDE [Suspect]
     Indication: GLIOBLASTOMA
     Dosage: 75 MG/M2; ; PO, 200 MG/M2; QD; PO
     Route: 048
     Dates: start: 20071126
  3. DIPYRONE TAB [Suspect]
     Indication: PAIN
     Dosage: 20 GTT; PRN;
  4. HYDROCHLOROTHIAZIDE [Suspect]
     Indication: CARDIAC FAILURE
     Dosage: 25 MG; QD; PO
     Route: 048
  5. UNAT (TORASEMIDE) [Suspect]
     Indication: CARDIAC FAILURE
     Dosage: 10 MG; BID; PO, 10 MG; QD; PO
     Route: 048
     Dates: start: 20071211
  6. UNAT (TORASEMIDE) [Suspect]
     Indication: OEDEMA PERIPHERAL
     Dosage: 10 MG; BID; PO, 10 MG; QD; PO
     Route: 048
     Dates: start: 20071211
  7. UNAT (TORASEMIDE) [Suspect]
     Indication: CARDIAC FAILURE
     Dosage: 10 MG; BID; PO, 10 MG; QD; PO
     Route: 048
     Dates: start: 20080411
  8. UNAT (TORASEMIDE) [Suspect]
     Indication: OEDEMA PERIPHERAL
     Dosage: 10 MG; BID; PO, 10 MG; QD; PO
     Route: 048
     Dates: start: 20080411
  9. BISOPROLOL FUMARATE [Suspect]
     Indication: ATRIAL FIBRILLATION
     Dosage: 2.5 MG; QD;
     Dates: start: 20080111
  10. LISINOPRIL [Suspect]
     Indication: HYPERTENSION
     Dosage: 20 MG; QD; PO
     Route: 048
  11. DEXAMETHASONE [Suspect]
     Indication: GLIOBLASTOMA
     Dosage: 2 MG; TID; PO, 2 MG; QD; PO
     Route: 048
     Dates: start: 20071029
  12. NEXIUM [Suspect]
     Indication: GASTRIC DISORDER
     Dosage: 40 MG; QD; PO
     Route: 048
     Dates: start: 20071122
  13. FELODIPINE [Concomitant]

REACTIONS (7)
  - BLOOD PRESSURE INCREASED [None]
  - CARDIAC DEATH [None]
  - CARDIAC DISORDER [None]
  - DYSPNOEA [None]
  - HAEMOGLOBIN DECREASED [None]
  - PULMONARY CONGESTION [None]
  - RED BLOOD CELL COUNT DECREASED [None]
